FAERS Safety Report 22389257 (Version 4)
Quarter: 2023Q2

REPORT INFORMATION
  Report Type: Spontaneous
  Country: US (occurrence: US)
  Receive Date: 20230531
  Receipt Date: 20230531
  Transmission Date: 20230722
  Serious: No
  Sender: FDA-Public Use
  Company Number: US-Dermavant-000607

PATIENT
  Age: 52 Year
  Sex: Male

DRUGS (3)
  1. VTAMA [Suspect]
     Active Substance: TAPINAROF
     Dosage: AREA OF APPLICATION: GROIN
     Route: 061
     Dates: start: 202211, end: 2023
  2. OTEZLA [Concomitant]
     Active Substance: APREMILAST
     Indication: Seborrhoeic dermatitis
  3. FLONASE [Concomitant]
     Active Substance: FLUTICASONE PROPIONATE

REACTIONS (5)
  - Scrotal cyst [Not Recovered/Not Resolved]
  - Follicular disorder [Unknown]
  - Pustule [Not Recovered/Not Resolved]
  - Nodule [Not Recovered/Not Resolved]
  - Milia [Unknown]

NARRATIVE: CASE EVENT DATE: 20230301
